FAERS Safety Report 17273311 (Version 2)
Quarter: 2020Q1

REPORT INFORMATION
  Report Type: Spontaneous
  Country: US (occurrence: US)
  Receive Date: 20200115
  Receipt Date: 20200224
  Transmission Date: 20200409
  Serious: No
  Sender: FDA-Public Use
  Company Number: US-VERTEX PHARMACEUTICALS-2020-000279

PATIENT
  Sex: Female
  Weight: 83 kg

DRUGS (4)
  1. FASENRA [Concomitant]
     Active Substance: BENRALIZUMAB
     Dosage: 30 MG
  2. AMLODIPINE BESYLATE. [Concomitant]
     Active Substance: AMLODIPINE BESYLATE
     Dosage: 10 MG, QD
     Route: 048
  3. LOSARTAN POTASSIUM. [Concomitant]
     Active Substance: LOSARTAN POTASSIUM
     Dosage: 100 MG
  4. TRIKAFTA [Suspect]
     Active Substance: ELEXACAFTOR\IVACAFTOR\TEZACAFTOR
     Indication: CYSTIC FIBROSIS
     Dosage: 2 TABLETS (ELEXACAFTOR 100MG/ TEZCAFTOR 50MG/ IVACAFTOR 75MG) AM; 1 TABLET (IVACAFTOR 150MG) PM
     Route: 048

REACTIONS (7)
  - Wheezing [Unknown]
  - Cough [Unknown]
  - Migraine [Unknown]
  - Dyspnoea [Unknown]
  - Chest discomfort [Unknown]
  - Exercise tolerance decreased [Unknown]
  - Sleep disorder [Unknown]
